FAERS Safety Report 8344004-5 (Version None)
Quarter: 2012Q2

REPORT INFORMATION
  Report Type: 
  Country: None (occurrence: None)
  Receive Date: 20120508
  Receipt Date: 20101118
  Transmission Date: 20120825
  Serious: Yes (Other)
  Sender: FDA-Public Use
  Company Number: US-TEVA-2010006025

PATIENT
  Sex: Female
  Weight: 61.29 kg

DRUGS (2)
  1. TREANDA [Suspect]
     Indication: LYMPHOMA
     Route: 041
     Dates: start: 20101118
  2. RITUXAN [Concomitant]

REACTIONS (1)
  - INFUSION SITE EXTRAVASATION [None]
